FAERS Safety Report 7554942-9 (Version None)
Quarter: 2011Q2

REPORT INFORMATION
  Report Type: 
  Country: None (occurrence: None)
  Receive Date: 20110617
  Receipt Date: 20110614
  Transmission Date: 20111010
  Serious: Yes (Hospitalization)
  Sender: FDA-Public Use
  Company Number: BR-ABBOTT-10P-020-0691531-00

PATIENT
  Sex: Female
  Weight: 43 kg

DRUGS (5)
  1. HUMIRA [Suspect]
     Route: 058
     Dates: end: 20110301
  2. HUMIRA [Suspect]
     Indication: RHEUMATOID ARTHRITIS
     Route: 058
     Dates: start: 20090401
  3. PANTOPRAZOLE [Concomitant]
     Indication: PROPHYLAXIS AGAINST GASTROINTESTINAL ULCER
     Route: 048
     Dates: start: 20060101
  4. CORTICORTEN [Concomitant]
     Indication: RHEUMATOID ARTHRITIS
     Route: 048
     Dates: start: 20000101
  5. ARAVA [Concomitant]
     Indication: RHEUMATOID ARTHRITIS
     Route: 048
     Dates: start: 20090401

REACTIONS (10)
  - DIZZINESS [None]
  - DYSPNOEA [None]
  - VOMITING [None]
  - SKIN INFECTION [None]
  - DERMATITIS ALLERGIC [None]
  - OEDEMA PERIPHERAL [None]
  - HEART RATE INCREASED [None]
  - ANAEMIA [None]
  - BLOOD PRESSURE INCREASED [None]
  - WOUND [None]
